FAERS Safety Report 21033070 (Version 1)
Quarter: 2022Q3

REPORT INFORMATION
  Report Type: Spontaneous
  Country: US (occurrence: US)
  Receive Date: 20220701
  Receipt Date: 20220701
  Transmission Date: 20221027
  Serious: Yes (Life-Threatening, Hospitalization)
  Sender: FDA-Public Use
  Company Number: US-AVET LIFESCIENCES LTD-2022-AVET-000106

PATIENT
  Age: 61 Year
  Sex: Female

DRUGS (2)
  1. TACROLIMUS [Suspect]
     Active Substance: TACROLIMUS
     Indication: Immunosuppression
  2. MYFORTIC [Suspect]
     Active Substance: MYCOPHENOLATE SODIUM
     Indication: Immunosuppression

REACTIONS (2)
  - Multiple organ dysfunction syndrome [Recovering/Resolving]
  - Human ehrlichiosis [Recovering/Resolving]
